FAERS Safety Report 9551498 (Version 1)
Quarter: 2013Q3

REPORT INFORMATION
  Report Type: Spontaneous
  Country: US (occurrence: None)
  Receive Date: 20130724
  Receipt Date: 20130724
  Transmission Date: 20140515
  Serious: Yes (Other)
  Sender: FDA-Public Use
  Company Number: PHEH2012US010885

PATIENT
  Age: 55 Year
  Sex: Female

DRUGS (1)
  1. GLEEVEC [Suspect]
     Dosage: 400 MG, QD, 7 DAYS A WEEK, ORAL
     Route: 048
     Dates: start: 201105

REACTIONS (5)
  - Neutropenia [None]
  - Thrombocytopenia [None]
  - Mental impairment [None]
  - Contusion [None]
  - Fluid retention [None]
